FAERS Safety Report 11279155 (Version 1)
Quarter: 2015Q3

REPORT INFORMATION
  Report Type: Spontaneous
  Country: JP (occurrence: None)
  Receive Date: 20150715
  Receipt Date: 20150715
  Transmission Date: 20151125
  Serious: Yes (Hospitalization)
  Sender: FDA-Public Use
  Company Number: 2015-JP-000001

PATIENT
  Age: 29 Year
  Sex: Female

DRUGS (3)
  1. CLEAMINE TABLET (AMINOPHENAZONE, CAFFEINE, CYCLIZINE, CYCLOBARBITAL, ERGOTAMINE TARTRATE, PHENACETIN) [Concomitant]
  2. METHERGINE [Suspect]
     Active Substance: METHYLERGONOVINE MALEATE
     Indication: ABORTION SPONTANEOUS
     Route: 048
     Dates: start: 201108, end: 201108
  3. PANSPORIN TABLET (CEFOTIAM HYDROCHLORIDE) [Concomitant]

REACTIONS (1)
  - Meningitis aseptic [None]

NARRATIVE: CASE EVENT DATE: 201108
